FAERS Safety Report 9381547 (Version 3)
Quarter: 2014Q1

REPORT INFORMATION
  Report Type: Spontaneous
  Country: IT (occurrence: IT)
  Receive Date: 20130703
  Receipt Date: 20140123
  Transmission Date: 20141002
  Serious: Yes (Hospitalization, Other)
  Sender: FDA-Public Use
  Company Number: IT-JNJFOC-20130619443

PATIENT
  Age: 41 Year
  Sex: Female

DRUGS (3)
  1. TOPIRAMATE [Suspect]
     Indication: PRODUCT USED FOR UNKNOWN INDICATION
     Dosage: BETWEEN 10 AND 20 DOSE
     Route: 048
     Dates: start: 20130627, end: 20130627
  2. VENLAFAXINE [Concomitant]
     Indication: PRODUCT USED FOR UNKNOWN INDICATION
     Route: 065
  3. TRITTICO [Concomitant]
     Indication: PRODUCT USED FOR UNKNOWN INDICATION
     Route: 065

REACTIONS (5)
  - Intentional overdose [Unknown]
  - Dyskinesia [Recovered/Resolved]
  - Sedation [Recovered/Resolved]
  - Psychomotor skills impaired [Recovered/Resolved]
  - Self injurious behaviour [Recovered/Resolved]
